FAERS Safety Report 8378861-3 (Version None)
Quarter: 2012Q2

REPORT INFORMATION
  Report Type: 
  Country: None (occurrence: None)
  Receive Date: 20120523
  Receipt Date: 20120512
  Transmission Date: 20120825
  Serious: Yes (Other)
  Sender: FDA-Public Use
  Company Number: IN-PAR PHARMACEUTICAL, INC-2012SCPR004388

PATIENT

DRUGS (4)
  1. ESCITALOPRAM [Suspect]
     Indication: DEPRESSION
     Dosage: 10 MG, / DAY
     Route: 065
  2. CLONAZEPAM [Suspect]
     Indication: INSOMNIA
     Dosage: 0.5 MG/DAY AT BED TIME
     Route: 065
  3. AMLODIPINE BESYLATE [Concomitant]
     Indication: HYPERTENSION
     Dosage: 2.5 MG, / DAY
     Route: 065
  4. LOSARTAN POTASSIUM [Concomitant]
     Indication: HYPERTENSION
     Dosage: 25 MG, / DAY
     Route: 065

REACTIONS (1)
  - HYPOMANIA [None]
